FAERS Safety Report 6686308-8 (Version None)
Quarter: 2010Q2

REPORT INFORMATION
  Report Type: 
  Country: None (occurrence: None)
  Receive Date: 20100419
  Receipt Date: 20100409
  Transmission Date: 20101027
  Serious: Yes (Other)
  Sender: FDA-Public Use
  Company Number: US-PFIZER INC-2010045509

PATIENT
  Sex: Female

DRUGS (3)
  1. ZITHROMAX [Suspect]
     Indication: SINUSITIS
     Dosage: UNK
     Route: 048
     Dates: start: 20090101
  2. ZITHROMAX [Suspect]
     Dosage: UNK
     Route: 048
     Dates: start: 20100215, end: 20100225
  3. LIPITOR [Suspect]
     Dosage: UNK
     Dates: start: 20090101

REACTIONS (1)
  - BLOOD CREATININE INCREASED [None]
